FAERS Safety Report 5850425-2 (Version None)
Quarter: 2008Q3

REPORT INFORMATION
  Report Type: 
  Country: None (occurrence: None)
  Receive Date: 20080818
  Receipt Date: 20080804
  Transmission Date: 20090109
  Serious: Yes (Hospitalization)
  Sender: FDA-Public Use
  Company Number: 2007US002917

PATIENT
  Age: 41 Year
  Sex: Male
  Weight: 103.9 kg

DRUGS (1)
  1. AMEVIVE [Suspect]
     Indication: PSORIASIS
     Dosage: 15 MG, WEEKLY, INTRAMUSCULAR
     Route: 030
     Dates: start: 20040224, end: 20060912

REACTIONS (5)
  - FATIGUE [None]
  - GROIN ABSCESS [None]
  - STAPHYLOCOCCAL INFECTION [None]
  - TESTICULAR PAIN [None]
  - TESTICULAR SWELLING [None]
